FAERS Safety Report 15629261 (Version 3)
Quarter: 2018Q4

REPORT INFORMATION
  Report Type: Report from Study
  Country: JP (occurrence: JP)
  Receive Date: 20181116
  Receipt Date: 20181231
  Transmission Date: 20190205
  Serious: Yes (Hospitalization, Other)
  Sender: FDA-Public Use
  Company Number: JP-AMGEN-JPNNI2018162670

PATIENT
  Age: 74 Year
  Sex: Male
  Weight: 55.6 kg

DRUGS (4)
  1. ALFACALCIDOL [Suspect]
     Active Substance: ALFACALCIDOL
     Indication: PRODUCT USED FOR UNKNOWN INDICATION
     Dosage: 0.5 MUG, UNK
     Route: 048
  2. TANKARU [Concomitant]
     Dosage: 1500 MG, UNK
     Route: 048
     Dates: end: 20180912
  3. ETELCALCETIDE [Suspect]
     Active Substance: ETELCALCETIDE
     Indication: HYPERPARATHYROIDISM SECONDARY
     Dosage: 2.5 MG, 3 TIMES/WK (2.5 MG, Q56H)
     Route: 042
     Dates: start: 20171106
  4. LANTHANUM CARBONATE. [Concomitant]
     Active Substance: LANTHANUM CARBONATE
     Indication: HYPERPHOSPHATAEMIA
     Dosage: 750 MG, UNK
     Route: 048

REACTIONS (7)
  - Gastrointestinal haemorrhage [Recovering/Resolving]
  - Hyperkalaemia [Recovered/Resolved]
  - Large intestine polyp [Recovered/Resolved]
  - Fall [Unknown]
  - Gastritis erosive [Recovering/Resolving]
  - Hypercalcaemia [Recovered/Resolved]
  - Anaemia [Not Recovered/Not Resolved]

NARRATIVE: CASE EVENT DATE: 20180113
